FAERS Safety Report 9148583 (Version 1)
Quarter: 2013Q1

REPORT INFORMATION
  Report Type: Spontaneous
  Country: US (occurrence: None)
  Receive Date: 20130228
  Receipt Date: 20130228
  Transmission Date: 20140127
  Serious: Yes (Hospitalization)
  Sender: FDA-Public Use
  Company Number: None

PATIENT
  Age: 8 Month
  Sex: Male

DRUGS (1)
  1. ETOPOSIDE [Suspect]
     Route: 042
     Dates: start: 20130107, end: 20130107

REACTIONS (4)
  - Urticaria [None]
  - Swelling face [None]
  - Irritability [None]
  - Infusion related reaction [None]
